FAERS Safety Report 18858445 (Version 1)
Quarter: 2021Q1

REPORT INFORMATION
  Report Type: Spontaneous
  Country: FR (occurrence: FR)
  Receive Date: 20210208
  Receipt Date: 20210208
  Transmission Date: 20210420
  Serious: Yes (Hospitalization, Other)
  Sender: FDA-Public Use
  Company Number: FR-ACCORD-216732

PATIENT
  Age: 81 Year
  Sex: Male

DRUGS (6)
  1. ASPARAGINASE [Suspect]
     Active Substance: ASPARAGINASE
     Indication: DUCTAL ADENOCARCINOMA OF PANCREAS
     Dosage: PRIOR TO SAE ONSET, EVERY TWO WEEKS
     Route: 042
     Dates: start: 20190703, end: 20190705
  2. LEUCOVORIN SANDOZ [Suspect]
     Active Substance: LEUCOVORIN CALCIUM
     Indication: DUCTAL ADENOCARCINOMA OF PANCREAS
     Dosage: PRIOR TO SAE ONSET
     Route: 042
     Dates: start: 20190703, end: 20190705
  3. IRINTECAN MEDAC [Suspect]
     Active Substance: IRINOTECAN HYDROCHLORIDE
     Indication: DUCTAL ADENOCARCINOMA OF PANCREAS
     Dosage: PRIOR TO SAE ONSET
     Route: 042
     Dates: start: 20190703, end: 20190705
  4. INIPOMP [Concomitant]
     Active Substance: PANTOPRAZOLE SODIUM
     Indication: EPIGASTRIC DISCOMFORT
     Dosage: 1 OR 2, STRENGTH?40 MG,1 D
     Route: 048
  5. FLUOROURACIL ACCORD [Suspect]
     Active Substance: FLUOROURACIL
     Indication: DUCTAL ADENOCARCINOMA OF PANCREAS
     Dosage: BOLUS: 400 MG/M2,PRIOR TO SAE ONSET
     Route: 042
     Dates: start: 20190703, end: 20190705
  6. GAVISCON [Concomitant]
     Active Substance: ALUMINUM HYDROXIDE\MAGNESIUM CARBONATE
     Indication: EPIGASTRIC DISCOMFORT
     Dosage: AS REQUIRED
     Route: 048

REACTIONS (2)
  - General physical health deterioration [Recovered/Resolved with Sequelae]
  - Escherichia bacteraemia [Recovered/Resolved]

NARRATIVE: CASE EVENT DATE: 20190703
